FAERS Safety Report 23331336 (Version 1)
Quarter: 2023Q4

REPORT INFORMATION
  Report Type: Spontaneous
  Country: US (occurrence: None)
  Receive Date: 20231221
  Receipt Date: 20231221
  Transmission Date: 20240110
  Serious: Yes (Other)
  Sender: FDA-Public Use
  Company Number: None

PATIENT
  Age: 81 Year
  Sex: Female
  Weight: 74.25 kg

DRUGS (6)
  1. JARDIANCE [Suspect]
     Active Substance: EMPAGLIFLOZIN
     Indication: Type 2 diabetes mellitus
     Dosage: FREQUENCY : DAILY;?
     Route: 048
     Dates: start: 20231127, end: 20231204
  2. AMLODIPINE BESYLATE [Concomitant]
     Active Substance: AMLODIPINE BESYLATE
  3. ATENOLOL [Concomitant]
     Active Substance: ATENOLOL
  4. fenofibrate 160mg [Concomitant]
  5. magnesium oxide  250mg [Concomitant]
  6. metformin er 500mg (ab1) [Concomitant]

REACTIONS (9)
  - Hot flush [None]
  - Hyperhidrosis [None]
  - Cold sweat [None]
  - Dizziness [None]
  - Abnormal dreams [None]
  - Muscular weakness [None]
  - Insomnia [None]
  - Diarrhoea [None]
  - Blood glucose increased [None]

NARRATIVE: CASE EVENT DATE: 20231204
